FAERS Safety Report 10365823 (Version 1)
Quarter: 2014Q3

REPORT INFORMATION
  Report Type: Spontaneous
  Country: US (occurrence: US)
  Receive Date: 20140806
  Receipt Date: 20140806
  Transmission Date: 20150326
  Serious: No
  Sender: FDA-Public Use
  Company Number: US-ASTRAZENECA-2014SE54980

PATIENT
  Sex: Female

DRUGS (1)
  1. SYMBICORT [Suspect]
     Active Substance: BUDESONIDE\FORMOTEROL FUMARATE DIHYDRATE
     Indication: CHRONIC OBSTRUCTIVE PULMONARY DISEASE
     Dosage: 160 /4.5 ,1PUFF ONCE A DAY
     Route: 055

REACTIONS (4)
  - Candida infection [Recovered/Resolved]
  - Intentional product misuse [Unknown]
  - Off label use [Unknown]
  - Wrong technique in drug usage process [Unknown]
